FAERS Safety Report 12108770 (Version 1)
Quarter: 2016Q1

REPORT INFORMATION
  Report Type: Spontaneous
  Country: IN (occurrence: None)
  Receive Date: 20160222
  Receipt Date: 20160222
  Transmission Date: 20160526
  Serious: Yes (Life-Threatening, Hospitalization)
  Sender: FDA-Public Use
  Company Number: None

PATIENT
  Age: 38 Year
  Sex: Male
  Weight: 88 kg

DRUGS (9)
  1. AZTOR [Concomitant]
  2. PRAX [Concomitant]
     Active Substance: PRAMOXINE HYDROCHLORIDE
  3. ARIP [Concomitant]
  4. DIVA OD 2 STENTS [Concomitant]
  5. DULCOLAX (BISACODYL) [Suspect]
     Active Substance: BISACODYL
     Indication: CONSTIPATION
     Dosage: 2 PILLS AT BEDTIME TAKEN BY MOUTH
     Route: 048
  6. FEBUSTAT [Concomitant]
  7. NEXITO [Concomitant]
  8. ZIGLIM M2 [Concomitant]
  9. SULPITAC [Concomitant]
     Active Substance: AMISULPRIDE

REACTIONS (2)
  - Myocardial infarction [None]
  - Chest pain [None]

NARRATIVE: CASE EVENT DATE: 20131130
